FAERS Safety Report 4610485-3 (Version None)
Quarter: 2005Q1

REPORT INFORMATION
  Report Type: 
  Country: None (occurrence: None)
  Receive Date: 20050316
  Receipt Date: 20041215
  Transmission Date: 20050727
  Serious: No
  Sender: FDA-Public Use
  Company Number: US-MERCK-0412USA02014

PATIENT
  Age: 72 Year
  Sex: Male
  Weight: 101 kg

DRUGS (4)
  1. PRINIVIL [Suspect]
     Indication: HYPERTENSION
     Route: 048
     Dates: start: 20040501, end: 20040801
  2. ZOCOR [Concomitant]
     Route: 048
  3. PLAVIX [Concomitant]
     Route: 065
  4. ETODOLAC [Concomitant]
     Route: 065

REACTIONS (6)
  - CHEST PAIN [None]
  - DIZZINESS [None]
  - INCOHERENT [None]
  - STOMACH DISCOMFORT [None]
  - SYNCOPE [None]
  - TENSION HEADACHE [None]
